FAERS Safety Report 8531832-6 (Version None)
Quarter: 2012Q3

REPORT INFORMATION
  Report Type: 
  Country: None (occurrence: None)
  Receive Date: 20120723
  Receipt Date: 20120717
  Transmission Date: 20120928
  Serious: No
  Sender: FDA-Public Use
  Company Number: US-PFIZER INC-2012130067

PATIENT
  Sex: Female
  Weight: 89.796 kg

DRUGS (5)
  1. TOPAMAX [Concomitant]
     Indication: NERVOUS SYSTEM DISORDER
     Dosage: 50 MG, DAILY
  2. CELEXA [Concomitant]
     Indication: DEPRESSION
     Dosage: 40 MG, DAILY
  3. LYRICA [Suspect]
     Dosage: 200 MG, 3X/DAY
     Route: 048
  4. LYRICA [Suspect]
     Indication: NEUROPATHY PERIPHERAL
     Dosage: 100 MG, 2X/DAY
     Route: 048
     Dates: start: 20110501
  5. AMITRIPTYLINE [Concomitant]
     Indication: NERVOUS SYSTEM DISORDER
     Dosage: 300 MG, DAILY

REACTIONS (1)
  - PAIN IN EXTREMITY [None]
